FAERS Safety Report 8592069-8 (Version None)
Quarter: 2012Q3

REPORT INFORMATION
  Report Type: 
  Country: None (occurrence: None)
  Receive Date: 20120814
  Receipt Date: 20120808
  Transmission Date: 20120928
  Serious: Yes (Life-Threatening, Hospitalization, Other)
  Sender: FDA-Public Use
  Company Number: AU-ASTELLAS-2012US006850

PATIENT
  Sex: Male

DRUGS (12)
  1. CREON [Concomitant]
     Indication: DIARRHOEA
     Dosage: 4000 IU, UNKNOWN/D
     Route: 048
  2. ACETAMINOPHEN [Concomitant]
     Indication: PAIN
     Dosage: 30 MG, UNKNOWN/D
     Route: 048
     Dates: start: 20120329
  3. GEMCITABINE HYDROCHLORIDE [Suspect]
     Dosage: UNK
     Route: 042
     Dates: start: 20111013
  4. ERLOTINIB HYDROCHLORIDE [Suspect]
     Dosage: UNK
     Route: 048
     Dates: start: 20111013
  5. HALOPERIDOL [Concomitant]
     Indication: NAUSEA
     Dosage: 0.5 MG, UNKNOWN/D
     Route: 048
     Dates: start: 20111110
  6. GASTRO-STOP [Concomitant]
     Indication: DIARRHOEA
     Dosage: 2 MG, UNKNOWN/D
     Route: 048
     Dates: start: 20110908
  7. COPLAVIX [Concomitant]
     Indication: MYOCARDIAL ISCHAEMIA
     Dosage: UNK
     Route: 048
     Dates: start: 20081110
  8. ERLOTINIB HYDROCHLORIDE [Suspect]
     Indication: PANCREATIC CARCINOMA
     Dosage: 100 MG, UID/QD
     Route: 048
     Dates: start: 20110929, end: 20111006
  9. ERLOTINIB HYDROCHLORIDE [Suspect]
     Dosage: 150 MG, UID/QD
     Route: 048
     Dates: start: 20120418, end: 20120423
  10. GEMCITABINE HYDROCHLORIDE [Suspect]
     Indication: PANCREATIC CARCINOMA
     Dosage: 1960 MG, WEEKLY
     Route: 042
     Dates: start: 20110929, end: 20111006
  11. CAPECITABINE [Suspect]
     Indication: PANCREATIC CARCINOMA
     Dosage: 1500 MG, BID
     Route: 048
     Dates: start: 20120220
  12. DEXAMETHASONE [Concomitant]
     Indication: DECREASED APPETITE
     Dosage: 2 MG, UNKNOWN/D
     Route: 048
     Dates: start: 20120113, end: 20120323

REACTIONS (5)
  - ORTHOSTATIC HYPOTENSION [None]
  - DEHYDRATION [None]
  - DIARRHOEA [None]
  - HYPOTENSION [None]
  - KLEBSIELLA SEPSIS [None]
